FAERS Safety Report 19139955 (Version 3)
Quarter: 2021Q2

REPORT INFORMATION
  Report Type: Report from Study
  Country: US (occurrence: US)
  Receive Date: 20210415
  Receipt Date: 20210609
  Transmission Date: 20210717
  Serious: Yes (Other)
  Sender: FDA-Public Use
  Company Number: NVSC2021US078062

PATIENT
  Sex: Female

DRUGS (2)
  1. PIQRAY [Suspect]
     Active Substance: ALPELISIB
     Indication: BREAST CANCER
     Dosage: 300 MG, QD
     Route: 048
  2. PIQRAY [Suspect]
     Active Substance: ALPELISIB
     Dosage: REDUCED DOSE
     Route: 065
     Dates: start: 20210606

REACTIONS (5)
  - Vomiting [Recovering/Resolving]
  - Fatigue [Unknown]
  - Renal impairment [Unknown]
  - Diarrhoea [Recovering/Resolving]
  - Dehydration [Recovering/Resolving]
